FAERS Safety Report 9314650 (Version 1)
Quarter: 2013Q2

REPORT INFORMATION
  Report Type: Spontaneous
  Country: US (occurrence: US)
  Receive Date: 20130529
  Receipt Date: 20130529
  Transmission Date: 20140414
  Serious: Yes (Hospitalization, Other)
  Sender: FDA-Public Use
  Company Number: US-BRISTOL-MYERS SQUIBB COMPANY-18926220

PATIENT
  Age: 7 Decade
  Sex: Female
  Weight: 70 kg

DRUGS (2)
  1. COUMADIN [Suspect]
     Indication: ATRIAL FIBRILLATION
  2. CELERY [Suspect]

REACTIONS (3)
  - Pericardial effusion [Unknown]
  - International normalised ratio increased [Unknown]
  - Gastrooesophageal reflux disease [Unknown]
